FAERS Safety Report 11719813 (Version 1)
Quarter: 2015Q4

REPORT INFORMATION
  Report Type: Report from Study
  Country: JP (occurrence: JP)
  Receive Date: 20151110
  Receipt Date: 20151110
  Transmission Date: 20160304
  Serious: Yes (Death, Hospitalization)
  Sender: FDA-Public Use
  Company Number: JP-ROCHE-1458274

PATIENT
  Age: 73 Year
  Sex: Female

DRUGS (35)
  1. NEOSTELIN GREEN [Concomitant]
     Route: 061
     Dates: start: 20140821
  2. NEOSTELIN GREEN [Concomitant]
     Route: 061
     Dates: start: 20140917, end: 20140917
  3. AFTACH [Concomitant]
     Active Substance: TRIAMCINOLONE
     Route: 061
     Dates: start: 20150128, end: 20150130
  4. HACHIAZULE [Concomitant]
     Route: 061
     Dates: start: 20150317
  5. CRESTOR [Concomitant]
     Active Substance: ROSUVASTATIN CALCIUM
     Indication: HYPERLIPIDAEMIA
     Route: 048
     Dates: start: 20110119, end: 20141105
  6. ALOXI [Concomitant]
     Active Substance: PALONOSETRON HYDROCHLORIDE
     Route: 042
     Dates: start: 20140723, end: 20141015
  7. SENNA [Concomitant]
     Active Substance: SENNA LEAF\SENNOSIDES\SENNOSIDES A AND B
     Indication: CONSTIPATION
     Route: 048
  8. MAXIPIME [Concomitant]
     Active Substance: CEFEPIME HYDROCHLORIDE
     Dosage: 1000-2000 MG, BID
     Route: 042
     Dates: start: 20140822, end: 20140825
  9. NEOSTELIN GREEN [Concomitant]
     Route: 061
     Dates: start: 20141021, end: 20141106
  10. BLINDED IBRUTINIB [Suspect]
     Active Substance: IBRUTINIB
     Indication: B-CELL LYMPHOMA
     Route: 048
     Dates: start: 20140723, end: 20150104
  11. CALONAL [Concomitant]
     Active Substance: ACETAMINOPHEN
     Route: 048
     Dates: start: 20140312
  12. POLARAMINE [Concomitant]
     Active Substance: DEXCHLORPHENIRAMINE MALEATE
     Dosage: 30 MIN BEFORE INJECTION
     Route: 048
     Dates: start: 20140723
  13. ZOPICLONE [Concomitant]
     Active Substance: ZOPICLONE
     Indication: INSOMNIA
     Route: 048
     Dates: start: 20140724
  14. ZOLPIDEM TARTRATE. [Concomitant]
     Active Substance: ZOLPIDEM TARTRATE
     Indication: INSOMNIA
     Route: 048
     Dates: start: 20140721
  15. ZOLPIDEM TARTRATE. [Concomitant]
     Active Substance: ZOLPIDEM TARTRATE
     Route: 048
     Dates: start: 20140821
  16. NEOSTELIN GREEN [Concomitant]
     Route: 061
     Dates: start: 20140918, end: 20140924
  17. CALONAL [Concomitant]
     Active Substance: ACETAMINOPHEN
     Route: 048
     Dates: start: 20140821, end: 20140821
  18. NEOSTELIN GREEN [Concomitant]
     Route: 061
     Dates: start: 20150102, end: 20150130
  19. SULFAMETHOXAZOLE/TRIMETHOPRIM [Concomitant]
     Active Substance: SULFAMETHOXAZOLE\TRIMETHOPRIM
     Indication: INFECTION PROPHYLAXIS
     Route: 048
     Dates: start: 20091111
  20. CALONAL [Concomitant]
     Active Substance: ACETAMINOPHEN
     Dosage: 30 MIN BEFORE INJECTION
     Route: 048
     Dates: start: 20140723, end: 20141015
  21. POLARAMINE [Concomitant]
     Active Substance: DEXCHLORPHENIRAMINE MALEATE
     Dosage: 30 MIN BEFORE INJECTION; DAY 1 OF?EACH CYCLE
     Route: 065
     Dates: start: 20140723, end: 20141015
  22. DEXALTIN [Concomitant]
     Active Substance: DEXAMETHASONE
     Route: 065
     Dates: start: 20150114, end: 20150130
  23. RISPERIDONE. [Concomitant]
     Active Substance: RISPERIDONE
     Indication: INSOMNIA
     Route: 048
     Dates: start: 20150316, end: 20150316
  24. LIDOCAINE. [Concomitant]
     Active Substance: LIDOCAINE
     Indication: STOMATITIS
     Route: 061
     Dates: start: 20150317
  25. RITUXIMAB [Suspect]
     Active Substance: RITUXIMAB
     Indication: B-CELL LYMPHOMA
     Route: 042
     Dates: start: 20140723, end: 20140820
  26. NEOSTELIN GREEN [Concomitant]
     Route: 061
     Dates: start: 20140721
  27. NEOSTELIN GREEN [Concomitant]
     Route: 061
     Dates: start: 201410, end: 201410
  28. BENDAMUSTINE HYDROCHLORIDE [Suspect]
     Active Substance: BENDAMUSTINE HYDROCHLORIDE
     Indication: B-CELL LYMPHOMA
     Route: 042
     Dates: start: 20140723
  29. VICCLOX [Concomitant]
     Active Substance: ACYCLOVIR SODIUM
     Indication: INFECTION PROPHYLAXIS
     Route: 048
     Dates: start: 20091111
  30. VICCLOX [Concomitant]
     Active Substance: ACYCLOVIR SODIUM
     Route: 048
     Dates: start: 20140319
  31. VICCLOX [Concomitant]
     Active Substance: ACYCLOVIR SODIUM
     Route: 048
     Dates: start: 20150129
  32. VICCLOX [Concomitant]
     Active Substance: ACYCLOVIR SODIUM
     Route: 048
     Dates: start: 20051111, end: 20150104
  33. HALCION [Concomitant]
     Active Substance: TRIAZOLAM
     Indication: INSOMNIA
     Route: 048
     Dates: start: 20080618
  34. SENEGA [Concomitant]
     Indication: NASOPHARYNGITIS
     Route: 048
     Dates: start: 20150120, end: 20150215
  35. HACHIAZULE [Concomitant]
     Indication: STOMATITIS
     Route: 061
     Dates: start: 20150311, end: 20150318

REACTIONS (3)
  - Febrile neutropenia [Recovered/Resolved]
  - Cardio-respiratory arrest [Fatal]
  - Bacterial infection [Recovered/Resolved]

NARRATIVE: CASE EVENT DATE: 20140821
